FAERS Safety Report 5971428-3 (Version None)
Quarter: 2008Q4

REPORT INFORMATION
  Report Type: 
  Country: None (occurrence: None)
  Receive Date: 20081130
  Receipt Date: 20081124
  Transmission Date: 20090506
  Serious: Yes (Other)
  Sender: FDA-Public Use
  Company Number: US-PFIZER INC-2008100007

PATIENT
  Sex: Female

DRUGS (2)
  1. DEPO-PROVERA SUSPENSION/INJ [Suspect]
     Indication: CONTRACEPTION
     Route: 030
     Dates: start: 20080617, end: 20080617
  2. DEPO-PROVERA SUSPENSION/INJ [Suspect]
     Route: 030
     Dates: start: 20080902, end: 20080902

REACTIONS (4)
  - DRUG INEFFECTIVE [None]
  - LOWER RESPIRATORY TRACT INFECTION [None]
  - UNINTENDED PREGNANCY [None]
  - UTERINE HAEMORRHAGE [None]
